FAERS Safety Report 15468093 (Version 2)
Quarter: 2018Q4

REPORT INFORMATION
  Report Type: Spontaneous
  Country: US (occurrence: US)
  Receive Date: 20181005
  Receipt Date: 20181211
  Transmission Date: 20190204
  Serious: No
  Sender: FDA-Public Use
  Company Number: US-ASTRAZENECA-2018SF25464

PATIENT
  Sex: Male
  Weight: 104.3 kg

DRUGS (3)
  1. BRILINTA [Suspect]
     Active Substance: TICAGRELOR
     Dosage: DOSE AND FREQUENCY UNKNOWN
     Route: 048
     Dates: start: 20180912, end: 20180924
  2. BENAZAPRIL WITH HCTZ [Concomitant]
     Dosage: 10-12.5 ONE HALF A PILL A DAY
  3. ATENOLOL. [Concomitant]
     Active Substance: ATENOLOL

REACTIONS (7)
  - Drug intolerance [Unknown]
  - Appetite disorder [Unknown]
  - Osteoarthritis [Unknown]
  - Headache [Recovering/Resolving]
  - Abdominal discomfort [Unknown]
  - Gout [Unknown]
  - Dyspnoea [Unknown]
